FAERS Safety Report 11232941 (Version 4)
Quarter: 2016Q1

REPORT INFORMATION
  Report Type: Report from Study
  Country: US (occurrence: US)
  Receive Date: 20150701
  Receipt Date: 20160309
  Transmission Date: 20160525
  Serious: Yes (Hospitalization)
  Sender: FDA-Public Use
  Company Number: US-ACTELION-A-NJ2015-120340

PATIENT
  Age: 61 Year
  Sex: Female

DRUGS (1)
  1. VELETRI [Suspect]
     Active Substance: EPOPROSTENOL
     Indication: PULMONARY HYPERTENSION
     Dosage: 50 NG/KG, PER MIN
     Route: 042
     Dates: start: 20150601

REACTIONS (3)
  - Nasopharyngitis [Unknown]
  - Lower respiratory tract infection [Unknown]
  - Pneumonia [Unknown]
